FAERS Safety Report 7247147-2 (Version None)
Quarter: 2011Q1

REPORT INFORMATION
  Report Type: 
  Country: None (occurrence: None)
  Receive Date: 20110127
  Receipt Date: 20100916
  Transmission Date: 20110831
  Serious: No
  Sender: FDA-Public Use
  Company Number: US-BAUSCH-2010BL005230

PATIENT
  Age: 63 Year
  Sex: Female

DRUGS (3)
  1. CLARITIN /USA/ [Concomitant]
     Indication: HYPERSENSITIVITY
     Route: 048
  2. FLONASE [Concomitant]
     Indication: HYPERSENSITIVITY
     Route: 045
  3. ALAWAY [Suspect]
     Indication: HYPERSENSITIVITY
     Route: 047
     Dates: start: 20100909, end: 20100911

REACTIONS (2)
  - DRUG INEFFECTIVE [None]
  - EYE IRRITATION [None]
